FAERS Safety Report 11668207 (Version 2)
Quarter: 2015Q4

REPORT INFORMATION
  Report Type: Spontaneous
  Country: US (occurrence: US)
  Receive Date: 20151027
  Receipt Date: 20151027
  Transmission Date: 20160304
  Serious: Yes (Other)
  Sender: FDA-Public Use
  Company Number: CHPA2015US012545

PATIENT
  Age: 60 Year
  Sex: Female

DRUGS (1)
  1. EXCEDRIN EXTRA STRENGTH [Suspect]
     Active Substance: ACETAMINOPHEN\ASPIRIN\CAFFEINE
     Indication: MIGRAINE
     Dosage: 2 DF,
     Route: 048
     Dates: start: 2008, end: 201503

REACTIONS (4)
  - Migraine [Unknown]
  - Cerebrovascular accident [Recovering/Resolving]
  - Therapeutic response unexpected [Unknown]
  - Product use issue [Unknown]

NARRATIVE: CASE EVENT DATE: 2008
